FAERS Safety Report 9490793 (Version 2)
Quarter: 2013Q3

REPORT INFORMATION
  Report Type: Spontaneous
  Country: BR (occurrence: BR)
  Receive Date: 20130830
  Receipt Date: 20130926
  Transmission Date: 20140515
  Serious: Yes (Other)
  Sender: FDA-Public Use
  Company Number: PHHY2013BR094093

PATIENT
  Age: 61 Year
  Sex: Female
  Weight: 80 kg

DRUGS (14)
  1. FORASEQ [Suspect]
     Indication: RESPIRATORY DISORDER
     Dosage: 1 DF, Q12H
  2. DILTIAZEM [Suspect]
     Indication: CARDIAC DISORDER
     Dosage: 2 DF, DAILY
     Route: 048
  3. DILTIAZEM [Suspect]
     Indication: VENOUS THROMBOSIS
  4. ATORVASTATIN [Concomitant]
     Indication: CARDIAC DISORDER
     Dosage: 2 DF, DAILY
     Route: 048
  5. ACETYLSALICYLIC ACID [Concomitant]
     Indication: CARDIAC DISORDER
     Dosage: 1 DF, DAILY
     Route: 048
  6. ISORDIL [Concomitant]
     Indication: CARDIAC DISORDER
     Dosage: 1 DF, PRN
     Route: 060
  7. SILDENAFIL CITRATE [Concomitant]
     Indication: CARDIAC DISORDER
     Dosage: 2 DF, DAILY
     Route: 048
  8. OMEPRAZOLE [Concomitant]
     Indication: GASTRIC DISORDER
     Dosage: 2 DF, DAILY
     Route: 048
  9. RIVOTRIL [Concomitant]
     Indication: NERVOUSNESS
     Dosage: 1 DF, DAILY
     Route: 048
  10. EUTHYROX [Concomitant]
     Indication: THYROID DISORDER
     Dosage: 1 DF, DAILY
     Route: 048
  11. CEFALIV [Concomitant]
     Indication: HEADACHE
     Dosage: 3 TO 4 DF, DAILY
     Route: 048
  12. DRAMIN B6 [Concomitant]
     Indication: LABYRINTHITIS
     Dosage: 1 DF, DAILY
     Route: 048
  13. DRAMIN B6 [Concomitant]
     Indication: RETCHING
  14. SUSTRATE [Concomitant]
     Indication: ANGIOPATHY
     Dosage: 1 DF, DAILY
     Route: 048

REACTIONS (6)
  - Venous occlusion [Not Recovered/Not Resolved]
  - Diabetes mellitus [Unknown]
  - Tricuspid valve disease [Not Recovered/Not Resolved]
  - Dyspnoea [Recovered/Resolved]
  - Formication [Not Recovered/Not Resolved]
  - Depression [Recovered/Resolved]
